FAERS Safety Report 12204017 (Version 1)
Quarter: 2016Q1

REPORT INFORMATION
  Report Type: Spontaneous
  Country: US (occurrence: None)
  Receive Date: 20160322
  Receipt Date: 20160322
  Transmission Date: 20160526
  Serious: Yes (Other)
  Sender: FDA-Public Use
  Company Number: None

PATIENT
  Age: 69 Year
  Sex: Male

DRUGS (2)
  1. GEMCITABINE [Suspect]
     Active Substance: GEMCITABINE\GEMCITABINE HYDROCHLORIDE
  2. CISPLATIN. [Suspect]
     Active Substance: CISPLATIN

REACTIONS (2)
  - Atrioventricular block complete [None]
  - Petit mal epilepsy [None]

NARRATIVE: CASE EVENT DATE: 20151217
